FAERS Safety Report 9387546 (Version 1)
Quarter: 2013Q3

REPORT INFORMATION
  Report Type: Spontaneous
  Country: BR (occurrence: BR)
  Receive Date: 20130708
  Receipt Date: 20130708
  Transmission Date: 20140515
  Serious: Yes (Hospitalization)
  Sender: FDA-Public Use
  Company Number: BR-PFIZER INC-2013198821

PATIENT
  Age: 43 Year
  Sex: Female

DRUGS (1)
  1. LYRICA [Suspect]
     Indication: DISCOMFORT
     Dosage: 75 MG, 2X/DAY (ONE TABLET EVERY 12 HOURS)
     Route: 048
     Dates: start: 20100703

REACTIONS (1)
  - Pelvic neoplasm [Unknown]
